FAERS Safety Report 4935266-2 (Version None)
Quarter: 2006Q1

REPORT INFORMATION
  Report Type: 
  Country: None (occurrence: None)
  Receive Date: 20060302
  Receipt Date: 20060210
  Transmission Date: 20060701
  Serious: Yes (Hospitalization, Other)
  Sender: FDA-Public Use
  Company Number: US_0509122430

PATIENT
  Age: 49 Year
  Sex: Female
  Weight: 74.8 kg

DRUGS (6)
  1. ZYPREXA [Suspect]
     Dosage: 10 MG, EACH EVENING, ORAL
     Route: 048
     Dates: end: 20030509
  2. SEROQUEL [Concomitant]
  3. ZOLOFT [Concomitant]
  4. REMERON [Concomitant]
  5. XANAX [Concomitant]
  6. GLIPIZIDE [Concomitant]

REACTIONS (10)
  - DIABETES MELLITUS [None]
  - GALLBLADDER DISORDER [None]
  - HERNIA REPAIR [None]
  - IRON DEFICIENCY ANAEMIA [None]
  - MYOCARDIAL ISCHAEMIA [None]
  - PANCREATECTOMY [None]
  - PANCREATIC PSEUDOCYST [None]
  - PLATELET COUNT INCREASED [None]
  - POSTOPERATIVE WOUND INFECTION [None]
  - WOUND INFECTION STAPHYLOCOCCAL [None]
